FAERS Safety Report 6718930-4 (Version None)
Quarter: 2010Q2

REPORT INFORMATION
  Report Type: 
  Country: None (occurrence: None)
  Receive Date: 20100511
  Receipt Date: 20100503
  Transmission Date: 20101027
  Serious: Yes (Life-Threatening, Hospitalization, Other)
  Sender: FDA-Public Use
  Company Number: RO-JNJFOC-20100105401

PATIENT
  Sex: Male
  Weight: 90 kg

DRUGS (1)
  1. RISPOLEPT CONSTA [Suspect]
     Indication: SCHIZOAFFECTIVE DISORDER
     Route: 030

REACTIONS (3)
  - ADENOSQUAMOUS CELL LUNG CANCER [None]
  - BONE NEOPLASM MALIGNANT [None]
  - METASTASES TO BONE [None]
